FAERS Safety Report 6826871-7 (Version None)
Quarter: 2010Q3

REPORT INFORMATION
  Report Type: 
  Country: None (occurrence: None)
  Receive Date: 20100709
  Receipt Date: 20100629
  Transmission Date: 20110219
  Serious: Yes (Hospitalization)
  Sender: FDA-Public Use
  Company Number: US-ROCHE-712605

PATIENT
  Sex: Male

DRUGS (14)
  1. PEGINTERFERON ALFA-2A [Suspect]
     Indication: HEPATITIS C
     Dosage: PREFILLED SYRINGE
     Route: 065
     Dates: start: 20100409
  2. PEGINTERFERON ALFA-2A [Suspect]
     Route: 065
  3. RIBAVIRIN [Suspect]
     Indication: HEPATITIS C
     Route: 065
     Dates: start: 20100409
  4. RIBAVIRIN [Suspect]
     Dosage: DOSE REDUCED
     Route: 065
  5. INSULIN [Concomitant]
  6. METFORMIN HCL [Concomitant]
  7. LYRICA [Concomitant]
  8. DIOVAN [Concomitant]
  9. DIOXAN [Concomitant]
  10. HYDROCHLOROTHIAZIDE [Concomitant]
  11. RANITIDINE [Concomitant]
  12. MORPHINE SULFATE [Concomitant]
  13. PROAIR HFA [Concomitant]
  14. ALBUTEROL [Concomitant]

REACTIONS (2)
  - FULL BLOOD COUNT DECREASED [None]
  - HAEMORRHAGE [None]
